FAERS Safety Report 11827826 (Version 1)
Quarter: 2015Q4

REPORT INFORMATION
  Report Type: Spontaneous
  Country: US (occurrence: US)
  Receive Date: 20151211
  Receipt Date: 20151211
  Transmission Date: 20160305
  Serious: No
  Sender: FDA-Public Use
  Company Number: US-BAYER-2015-486817

PATIENT
  Sex: Female

DRUGS (1)
  1. MIRALAX [Suspect]
     Active Substance: POLYETHYLENE GLYCOL 3350
     Indication: COLONOSCOPY
     Dosage: ONE 238 GRAMS OF MIRALAX PER 64 OUNCSE OF GATORADE, ONCE
     Route: 048
     Dates: start: 20151210, end: 20151210

REACTIONS (1)
  - Off label use [Recovered/Resolved]

NARRATIVE: CASE EVENT DATE: 20151210
